FAERS Safety Report 23999607 (Version 3)
Quarter: 2024Q3

REPORT INFORMATION
  Report Type: Spontaneous
  Country: SK (occurrence: SK)
  Receive Date: 20240621
  Receipt Date: 20240703
  Transmission Date: 20241016
  Serious: Yes (Other)
  Sender: MYLAN
  Company Number: SK-002147023-NVSC2024SK120793

PATIENT
  Age: 91 Year
  Sex: Female

DRUGS (2)
  1. CYCLOSPORINE [Suspect]
     Active Substance: CYCLOSPORINE
     Indication: Product used for unknown indication
     Dosage: 5 MILLIGRAM/KILOGRAM, QD, (DOSE TITRATED ACCORDING TO SERUM CONCENTRATION TO 2X250 MG)
     Route: 065
     Dates: start: 20220927, end: 202302
  2. CYCLOSPORINE [Suspect]
     Active Substance: CYCLOSPORINE
     Dosage: 250 MILLIGRAM, QD
     Route: 065
     Dates: start: 20220927, end: 202302

REACTIONS (3)
  - Renal failure [Unknown]
  - Neutropenia [Unknown]
  - Infection [Unknown]
